FAERS Safety Report 21957480 (Version 2)
Quarter: 2023Q1

REPORT INFORMATION
  Report Type: Spontaneous
  Country: US (occurrence: US)
  Receive Date: 20230206
  Receipt Date: 20230223
  Transmission Date: 20230418
  Serious: Yes (Life-Threatening, Hospitalization, Other)
  Sender: FDA-Public Use
  Company Number: US-PFIZER INC-PV202300020292

PATIENT
  Age: 68 Year
  Sex: Female
  Weight: 70.31 kg

DRUGS (10)
  1. IBRANCE [Suspect]
     Active Substance: PALBOCICLIB
     Indication: Gastric cancer stage IV
     Dosage: 125 MG, CYCLIC (ONCE A DAY AT BEDTIME FOR 21 DAYS AND OFF 7 DAYS)
     Route: 048
     Dates: end: 202210
  2. IBRANCE [Suspect]
     Active Substance: PALBOCICLIB
     Dosage: 125 MG, CYCLIC (ONCE A DAY AT BEDTIME FOR 21 DAYS AND OFF 7 DAYS)
     Route: 048
     Dates: start: 202301
  3. CYMBALTA [Concomitant]
     Active Substance: DULOXETINE HYDROCHLORIDE
     Dosage: UNK
  4. ROSUVASTATIN [Concomitant]
     Active Substance: ROSUVASTATIN
     Dosage: UNK
  5. VITAMIN B12 [Concomitant]
     Active Substance: CYANOCOBALAMIN
     Dosage: UNK
  6. FOLIC ACID [Concomitant]
     Active Substance: FOLIC ACID
     Dosage: UNK
  7. MIRTAZAPINE [Concomitant]
     Active Substance: MIRTAZAPINE
     Dosage: UNK
  8. QUETIAPINE [Concomitant]
     Active Substance: QUETIAPINE
     Dosage: UNK
  9. DEPAKOTE [Concomitant]
     Active Substance: DIVALPROEX SODIUM
     Dosage: UNK
  10. LETROZOLE [Concomitant]
     Active Substance: LETROZOLE
     Indication: Gastric cancer stage IV
     Dosage: UNK

REACTIONS (12)
  - Post procedural sepsis [Unknown]
  - Septic shock [Unknown]
  - Intestinal obstruction [Unknown]
  - Urinary tract infection [Unknown]
  - Kidney infection [Unknown]
  - Illness [Unknown]
  - Neoplasm progression [Unknown]
  - Asthenia [Unknown]
  - Blood pressure abnormal [Unknown]
  - White blood cell count abnormal [Unknown]
  - Red blood cell count abnormal [Unknown]
  - Off label use [Unknown]

NARRATIVE: CASE EVENT DATE: 20221101
